FAERS Safety Report 18367821 (Version 1)
Quarter: 2020Q4

REPORT INFORMATION
  Report Type: Spontaneous
  Country: US (occurrence: US)
  Receive Date: 20201009
  Receipt Date: 20201009
  Transmission Date: 20210114
  Serious: Yes (Other)
  Sender: FDA-Public Use
  Company Number: US-TEVA-2020-US-1836823

PATIENT
  Sex: Male

DRUGS (2)
  1. TRAMADOL. [Suspect]
     Active Substance: TRAMADOL
     Indication: BACK DISORDER
     Route: 065
  2. FENTANYL. [Suspect]
     Active Substance: FENTANYL
     Indication: BACK DISORDER
     Route: 065

REACTIONS (4)
  - Drug dependence [Unknown]
  - Marital problem [Unknown]
  - Seizure [Unknown]
  - Job dissatisfaction [Unknown]
